FAERS Safety Report 5174663-X (Version None)
Quarter: 2006Q4

REPORT INFORMATION
  Report Type: 
  Country: None (occurrence: None)
  Receive Date: 20061214
  Receipt Date: 20061128
  Transmission Date: 20070319
  Serious: Yes (Hospitalization, Other)
  Sender: FDA-Public Use
  Company Number: US-ABBOTT-06P-163-0351670-00

PATIENT
  Sex: Female
  Weight: 65.83 kg

DRUGS (2)
  1. BIAXIN [Suspect]
     Indication: COUGH
     Route: 048
     Dates: start: 20061104, end: 20061111
  2. BIAXIN [Suspect]
     Indication: PYREXIA

REACTIONS (9)
  - ANAEMIA [None]
  - ASTHENIA [None]
  - DYSPNOEA [None]
  - DYSSTASIA [None]
  - PALPITATIONS [None]
  - PANCYTOPENIA [None]
  - RASH GENERALISED [None]
  - VAGINAL HAEMORRHAGE [None]
  - WHITE BLOOD CELL COUNT DECREASED [None]
